FAERS Safety Report 8365575-9 (Version None)
Quarter: 2012Q2

REPORT INFORMATION
  Report Type: 
  Country: None (occurrence: None)
  Receive Date: 20120516
  Receipt Date: 20120504
  Transmission Date: 20120825
  Serious: Yes (Hospitalization, Other)
  Sender: FDA-Public Use
  Company Number: US-ROCHE-1053376

PATIENT
  Sex: Male

DRUGS (1)
  1. RITUXAN [Suspect]
     Indication: THROMBOTIC THROMBOCYTOPENIC PURPURA
     Dosage: DOSE:641 MG IN 64/CC
     Route: 042
     Dates: start: 20030101, end: 20050101

REACTIONS (7)
  - QUADRIPLEGIA [None]
  - PNEUMONIA [None]
  - DEPRESSION [None]
  - ENTEROVIRUS INFECTION [None]
  - MYELITIS TRANSVERSE [None]
  - ACUTE RESPIRATORY FAILURE [None]
  - INJURY [None]
